FAERS Safety Report 17769837 (Version 18)
Quarter: 2022Q1

REPORT INFORMATION
  Report Type: Spontaneous
  Country: US (occurrence: US)
  Receive Date: 20200512
  Receipt Date: 20220311
  Transmission Date: 20220424
  Serious: Yes (Other)
  Sender: FDA-Public Use
  Company Number: US-PFIZER INC-2015474652

PATIENT
  Age: 64 Year
  Sex: Female
  Weight: 79.379 kg

DRUGS (31)
  1. DILANTIN [Suspect]
     Active Substance: PHENYTOIN
     Indication: Focal dyscognitive seizures
     Dosage: UNK
     Dates: start: 1988
  2. DILANTIN [Suspect]
     Active Substance: PHENYTOIN
     Indication: Seizure
     Dosage: 30 MG, 1X/DAY (30MG, ONCE A DAY IN THE MORNING AT 5:30AM)
  3. DILANTIN [Suspect]
     Active Substance: PHENYTOIN
     Indication: Partial seizures
     Dosage: 300 MG, DAILY (1 CAP EVERY MORNING AND 2 CAP EVERY EVENING)
  4. DILANTIN [Suspect]
     Active Substance: PHENYTOIN
     Indication: Epilepsy
     Dosage: 30 MG DAILY 1 CAPSULE EVERY MORNING ALONG WITH 100 MG CAPSULE
  5. DILANTIN [Suspect]
     Active Substance: PHENYTOIN
     Indication: Epilepsy
     Dosage: 100 MG, 2X/DAY
  6. DILANTIN [Suspect]
     Active Substance: PHENYTOIN
     Dosage: 300 MG, DAILY (1 CAPSULE IN THE MORNING AND 2 CAPSULE IN THE EVENING)
     Dates: start: 20190114
  7. DILANTIN [Suspect]
     Active Substance: PHENYTOIN
     Dosage: 300 MG, DAILY [TAKE 1 CAPSULE (100 MG) BY MOUTH EVERY MORNING AND 2 CAPSULES (200 MG) EVERY EVENING]
     Route: 048
     Dates: start: 20200512
  8. DILANTIN [Suspect]
     Active Substance: PHENYTOIN
     Dosage: 30 MG, 2X/WEEK (MONDAY AND THURSDAY MORNINGS WITH THE 100 MG CAPSULE)
     Route: 048
     Dates: start: 20200514
  9. DILANTIN [Suspect]
     Active Substance: PHENYTOIN
     Dosage: 30 MG, 2X/WEEK (MONDAY AND THURSDAY MORNINGS WITH THE 100 MG CAPSULE)
     Route: 048
     Dates: start: 20200514
  10. DILANTIN [Suspect]
     Active Substance: PHENYTOIN
     Dosage: 300 MG, DAILY (100MG, SHE TAKES 1 AT 5:30AM AND 2 100MG AT 9:30 AT NIGHT/300MG DAILY )
     Route: 048
  11. DILANTIN [Suspect]
     Active Substance: PHENYTOIN
     Dosage: 30 MG, 2X/WEEK (ONLY TAKES 30MG, 2 TABLETS A WEEK - 30MG TWICE A WEEK/ EVERY MONDAY AND THURSDAY)
     Route: 048
  12. DILANTIN [Suspect]
     Active Substance: PHENYTOIN
     Dosage: 100 MG, 2X/DAY (100 MG 1 IN MORNING AND 1 IN EVENING)
  13. DILANTIN [Suspect]
     Active Substance: PHENYTOIN
     Dosage: 300 MG, DAILY (1 CAPSULE (100MG) BY MOUTH EVERY EVENING AND 2 CAPSULES (200 MG) EVERY EVENING)
     Route: 048
     Dates: start: 20210111
  14. CITRACAL CALCIUM PEARLS + D3 [Concomitant]
     Dosage: 2 DF, 1X/DAY
  15. CHOLECALCIFEROL [Concomitant]
     Active Substance: CHOLECALCIFEROL
     Dosage: 2000 IU, 1X/DAY
  16. LAMICTAL [Concomitant]
     Active Substance: LAMOTRIGINE
     Indication: Seizure
     Dosage: 200 MG, 2X/DAY
     Route: 048
     Dates: start: 1988
  17. LAMICTAL [Concomitant]
     Active Substance: LAMOTRIGINE
     Indication: Focal dyscognitive seizures
  18. KEPPRA [Concomitant]
     Active Substance: LEVETIRACETAM
     Indication: Seizure
     Dosage: UNK (5 A DAY)
     Dates: start: 1988
  19. KEPPRA [Concomitant]
     Active Substance: LEVETIRACETAM
     Indication: Focal dyscognitive seizures
     Dosage: 2500 MG, DAILY (2 TABLETS IN THE MORNING, AND 3 TABLETS IN THE EVENING)
     Route: 048
  20. CLARITIN [Concomitant]
     Active Substance: LORATADINE
     Indication: Hypersensitivity
     Dosage: UNK
  21. LYRICA [Concomitant]
     Active Substance: PREGABALIN
     Indication: Seizure
     Dosage: 8 DF, 1X/DAY
  22. LYRICA [Concomitant]
     Active Substance: PREGABALIN
     Indication: Focal dyscognitive seizures
     Dosage: UNK
  23. LYRICA [Concomitant]
     Active Substance: PREGABALIN
     Dosage: 75 MG, 8 TIMES A DAY
     Dates: start: 20130924
  24. ALEVE [Concomitant]
     Active Substance: NAPROXEN SODIUM
     Indication: Headache
     Dosage: UNK
  25. NYSTATIN [Concomitant]
     Active Substance: NYSTATIN
     Dosage: UNK (POWDER)
  26. DENTA 5000 PLUS [Concomitant]
     Active Substance: SODIUM FLUORIDE
     Dosage: UNK
  27. VALPROIC ACID [Concomitant]
     Active Substance: VALPROIC ACID
     Dosage: UNK
  28. PHENYTOIN [Concomitant]
     Active Substance: PHENYTOIN
     Dosage: UNK
  29. PHENOBARBITAL [Concomitant]
     Active Substance: PHENOBARBITAL
     Dosage: UNK
  30. MYSOLINE [Concomitant]
     Active Substance: PRIMIDONE
     Dosage: UNK
  31. TEGRETOL [Concomitant]
     Active Substance: CARBAMAZEPINE
     Dosage: UNK

REACTIONS (11)
  - Loss of consciousness [Unknown]
  - Seizure [Recovered/Resolved]
  - Anticonvulsant drug level increased [Unknown]
  - Confusional state [Unknown]
  - Product prescribing error [Unknown]
  - Expired product administered [Unknown]
  - Product container issue [Unknown]
  - Fall [Unknown]
  - Joint injury [Unknown]
  - Ligament sprain [Unknown]
  - Pain in extremity [Unknown]

NARRATIVE: CASE EVENT DATE: 20190101
